FAERS Safety Report 8909735 (Version 1)
Quarter: 2012Q4

REPORT INFORMATION
  Report Type: Spontaneous
  Country: US (occurrence: None)
  Receive Date: 20121109
  Receipt Date: 20121109
  Transmission Date: 20130627
  Serious: Yes (Death, Hospitalization)
  Sender: FDA-Public Use
  Company Number: USA/USA/12/0026536

PATIENT
  Age: 60 Year
  Sex: Male

DRUGS (1)
  1. SILVER SULFADIAZINE [Suspect]
     Indication: PEMPHIGUS VULGARIS
     Dosage: 1 %,  2 in 1 D,  Topical
     Route: 061

REACTIONS (6)
  - Clostridium difficile infection [None]
  - Pseudomembranous colitis [None]
  - Megacolon [None]
  - Acute respiratory distress syndrome [None]
  - Hypotension [None]
  - Multi-organ failure [None]
